FAERS Safety Report 16937033 (Version 1)
Quarter: 2019Q4

REPORT INFORMATION
  Report Type: Spontaneous
  Country: CH (occurrence: CH)
  Receive Date: 20191018
  Receipt Date: 20191018
  Transmission Date: 20200122
  Serious: Yes (Other)
  Sender: FDA-Public Use
  Company Number: CH-JNJFOC-20191016106

PATIENT
  Age: 50 Year
  Sex: Male

DRUGS (5)
  1. METRONIDAZOLE. [Concomitant]
     Active Substance: METRONIDAZOLE
  2. PREDNISONE. [Concomitant]
     Active Substance: PREDNISONE
  3. ADALIMUMAB [Concomitant]
     Active Substance: ADALIMUMAB
  4. STELARA [Suspect]
     Active Substance: USTEKINUMAB
     Indication: CROHN^S DISEASE
     Route: 058
  5. ETANERCEPT [Concomitant]
     Active Substance: ETANERCEPT

REACTIONS (1)
  - Liver abscess [Unknown]
